FAERS Safety Report 6153730-8 (Version None)
Quarter: 2009Q2

REPORT INFORMATION
  Report Type: 
  Country: None (occurrence: None)
  Receive Date: 20090410
  Receipt Date: 20090331
  Transmission Date: 20091009
  Serious: Yes (Hospitalization)
  Sender: FDA-Public Use
  Company Number: SPV1-2009-00568

PATIENT
  Age: 14 Year
  Sex: Male
  Weight: 59 kg

DRUGS (4)
  1. ADDERALL 10 [Suspect]
     Indication: ATTENTION DEFICIT/HYPERACTIVITY DISORDER
     Dosage: 5 MG, 1X/DAY:QD,; 10 MG, 1X/DAY:QD,; 15 MG, 1X/DAY:QD, ORAL; 20 MG, 1X/DAY:QD, ORAL
     Route: 048
     Dates: end: 20081201
  2. ADDERALL 10 [Suspect]
     Indication: ATTENTION DEFICIT/HYPERACTIVITY DISORDER
     Dosage: 5 MG, 1X/DAY:QD,; 10 MG, 1X/DAY:QD,; 15 MG, 1X/DAY:QD, ORAL; 20 MG, 1X/DAY:QD, ORAL
     Route: 048
     Dates: end: 20090101
  3. XANAX [Suspect]
     Dosage: ORAL
     Route: 048
     Dates: start: 20090101, end: 20090101
  4. BENADRYL [Suspect]
     Dosage: ORAL
     Route: 048
     Dates: start: 20090101, end: 20090101

REACTIONS (3)
  - MALAISE [None]
  - MOOD SWINGS [None]
  - SUICIDE ATTEMPT [None]
